FAERS Safety Report 13822171 (Version 1)
Quarter: 2017Q3

REPORT INFORMATION
  Report Type: Spontaneous
  Country: US (occurrence: US)
  Receive Date: 20170801
  Receipt Date: 20170801
  Transmission Date: 20171127
  Serious: Yes (Disabling, Other)
  Sender: FDA-Public Use
  Company Number: None

PATIENT
  Age: 55 Year
  Sex: Female
  Weight: 54.43 kg

DRUGS (14)
  1. PEROXIDE [Concomitant]
     Active Substance: HYDROGEN PEROXIDE
  2. ANTIDEPRESSANTS [Concomitant]
     Active Substance: UNSPECIFIED INGREDIENT
  3. CHLORHEXIDINE GUCONATE [Concomitant]
  4. WARM SALT WATER [Concomitant]
  5. VITAMIN D [Concomitant]
     Active Substance: CHOLECALCIFEROL
  6. MANGANESE [Concomitant]
     Active Substance: MANGANESE\MANGANESE CHLORIDE
  7. COLGATE TOOTHPASTE [Suspect]
     Active Substance: SODIUM MONOFLUOROPHOSPHATE
     Indication: DENTAL CLEANING
     Dosage: NDC # LISTED AS COLGATE FILE #-21002453?DOSE - BRUSH TEETH 2 TIMES/DAY FOR ONE MONTH/W/ANTIFREEZE
  8. IBUPROFEN. [Concomitant]
     Active Substance: IBUPROFEN
  9. PENICILLIN [Concomitant]
     Active Substance: PENICILLIN
  10. PURE BAKING SODA [Concomitant]
     Active Substance: SODIUM BICARBONATE
  11. MOUTH RINSE [Concomitant]
     Active Substance: EUCALYPTOL\MENTHOL\METHYL SALICYLATE\THYMOL
  12. MULTI VITAMIN [Concomitant]
     Active Substance: VITAMINS
  13. IBUPROFEN + ALEVE (NON-STEROID) [Concomitant]
  14. URSODIOL. [Concomitant]
     Active Substance: URSODIOL

REACTIONS (16)
  - Toothache [None]
  - Toxicity to various agents [None]
  - Oral pain [None]
  - Confusional state [None]
  - Weight decreased [None]
  - Reaction to excipient [None]
  - Gingival disorder [None]
  - Headache [None]
  - Product counterfeit [None]
  - Hepatic enzyme increased [None]
  - Loose tooth [None]
  - Counterfeit drug administered [None]
  - Anxiety [None]
  - Tooth abscess [None]
  - Product use issue [None]
  - Alopecia [None]

NARRATIVE: CASE EVENT DATE: 2006
